FAERS Safety Report 9350658 (Version 1)
Quarter: 2013Q2

REPORT INFORMATION
  Report Type: Spontaneous
  Country: US (occurrence: None)
  Receive Date: 20130613
  Receipt Date: 20130613
  Transmission Date: 20140414
  Serious: Yes (Life-Threatening, Hospitalization)
  Sender: FDA-Public Use
  Company Number: None

PATIENT
  Age: 81 Year
  Sex: Female
  Weight: 59 kg

DRUGS (9)
  1. ALTEPLASE [Suspect]
     Indication: ISCHAEMIC STROKE
     Route: 040
     Dates: start: 20130501, end: 20130501
  2. CALTRATE [Concomitant]
  3. COUMADIN [Concomitant]
  4. SORINE [Concomitant]
  5. CEPHALEXIN [Concomitant]
  6. CLONAZEPAM [Concomitant]
  7. LEVOTHYROXINE [Concomitant]
  8. NITROGLYCERIN [Concomitant]
  9. PRAVASTATIN [Concomitant]

REACTIONS (1)
  - Haemorrhagic transformation stroke [None]
